FAERS Safety Report 9568804 (Version 2)
Quarter: 2013Q3

REPORT INFORMATION
  Report Type: Spontaneous
  Country: US (occurrence: US)
  Receive Date: 20130930
  Receipt Date: 20130930
  Transmission Date: 20140515
  Serious: No
  Sender: FDA-Public Use
  Company Number: US-AMGEN-USASP2013050230

PATIENT
  Age: 40 Year
  Sex: Female

DRUGS (2)
  1. ENBREL [Suspect]
     Indication: ANKYLOSING SPONDYLITIS
     Dosage: 50 MG, WEEKLY
     Route: 058
     Dates: start: 20130615
  2. ENBREL [Suspect]
     Dosage: UNK
     Route: 058

REACTIONS (14)
  - Cough [Not Recovered/Not Resolved]
  - Chest discomfort [Not Recovered/Not Resolved]
  - Aphonia [Not Recovered/Not Resolved]
  - Arthralgia [Not Recovered/Not Resolved]
  - Back pain [Not Recovered/Not Resolved]
  - Musculoskeletal pain [Not Recovered/Not Resolved]
  - Pain in extremity [Not Recovered/Not Resolved]
  - Ear pain [Recovered/Resolved]
  - Facial pain [Recovered/Resolved]
  - Headache [Recovered/Resolved]
  - Paranasal sinus hypersecretion [Recovered/Resolved]
  - Oropharyngeal pain [Recovered/Resolved]
  - Ear infection [Unknown]
  - Sinusitis [Not Recovered/Not Resolved]
